FAERS Safety Report 5866562-2 (Version None)
Quarter: 2008Q3

REPORT INFORMATION
  Report Type: 
  Country: None (occurrence: None)
  Receive Date: 20080902
  Receipt Date: 20080821
  Transmission Date: 20090109
  Serious: Yes (Death)
  Sender: FDA-Public Use
  Company Number: KR-ELI_LILLY_AND_COMPANY-KR200808004475

PATIENT
  Age: 55 Year
  Sex: Male
  Weight: 83 kg

DRUGS (4)
  1. PEMETREXED [Suspect]
     Indication: NON-SMALL CELL LUNG CANCER
     Dosage: 1000 MG, UNK
     Route: 042
     Dates: start: 20071026
  2. FOLIC ACID [Concomitant]
     Indication: PROPHYLAXIS
     Dosage: 1 MG, DAILY (1/D)
     Route: 048
     Dates: start: 20071024
  3. VITAMIN B-12 [Concomitant]
     Indication: PROPHYLAXIS
     Dosage: 1000 UG, DAILY (1/D)
     Route: 058
     Dates: start: 20071019
  4. DEXAMETHASONE TAB [Concomitant]
     Indication: PROPHYLAXIS
     Dosage: 4 MG, 2/D
     Route: 048
     Dates: start: 20071026

REACTIONS (1)
  - PNEUMONIA [None]
